FAERS Safety Report 16850590 (Version 1)
Quarter: 2019Q3

REPORT INFORMATION
  Report Type: Spontaneous
  Country: US (occurrence: US)
  Receive Date: 20190925
  Receipt Date: 20190925
  Transmission Date: 20191005
  Serious: No
  Sender: FDA-Public Use
  Company Number: US-THERAPEUTICSMD-2019TMD01678

PATIENT
  Age: 60 Year
  Sex: Female
  Weight: 59.86 kg

DRUGS (3)
  1. IMVEXXY [Suspect]
     Active Substance: ESTRADIOL
     Indication: VULVOVAGINAL DRYNESS
     Dosage: 10 ?G BEFORE BED
     Route: 067
     Dates: start: 20190625, end: 20190625
  2. METFORMIN [Concomitant]
     Active Substance: METFORMIN HYDROCHLORIDE
  3. ONGLYZA [Concomitant]
     Active Substance: SAXAGLIPTIN HYDROCHLORIDE

REACTIONS (6)
  - Off label use [Recovered/Resolved]
  - Gait inability [Not Recovered/Not Resolved]
  - Mass [Not Recovered/Not Resolved]
  - Groin pain [Not Recovered/Not Resolved]
  - Knee operation [Unknown]
  - Pain [Not Recovered/Not Resolved]

NARRATIVE: CASE EVENT DATE: 2019
